FAERS Safety Report 9999510 (Version 1)
Quarter: 2014Q1

REPORT INFORMATION
  Report Type: Spontaneous
  Country: US (occurrence: None)
  Receive Date: 20140311
  Receipt Date: 20140311
  Transmission Date: 20141002
  Serious: No
  Sender: FDA-Public Use
  Company Number: None

PATIENT
  Age: 28 Year
  Sex: Female
  Weight: 75.9 kg

DRUGS (2)
  1. IOVERSOL [Suspect]
     Indication: ABDOMEN SCAN
     Route: 042
     Dates: start: 20140224, end: 20140224
  2. IOVERSOL [Suspect]
     Indication: ABDOMINAL PAIN
     Route: 042
     Dates: start: 20140224, end: 20140224

REACTIONS (1)
  - Hypersensitivity [None]
